FAERS Safety Report 5420079-8 (Version None)
Quarter: 2007Q3

REPORT INFORMATION
  Report Type: 
  Country: None (occurrence: None)
  Receive Date: 20070820
  Receipt Date: 20070810
  Transmission Date: 20080115
  Serious: Yes (Other)
  Sender: FDA-Public Use
  Company Number: US-SHR-US-2007-027968

PATIENT
  Age: 41 Year
  Sex: Female
  Weight: 68 kg

DRUGS (2)
  1. MIRENA [Suspect]
     Indication: MENORRHAGIA
     Dosage: 20 A?G/DAY, CONT
     Route: 015
     Dates: start: 20070713, end: 20070726
  2. NICODERM [Concomitant]
     Indication: SMOKING CESSATION THERAPY
     Route: 061
     Dates: end: 20070721

REACTIONS (2)
  - CHEST PAIN [None]
  - PAIN IN EXTREMITY [None]
